FAERS Safety Report 7457762-9 (Version None)
Quarter: 2011Q2

REPORT INFORMATION
  Report Type: 
  Country: None (occurrence: None)
  Receive Date: 20110504
  Receipt Date: 20110502
  Transmission Date: 20111010
  Serious: Yes (Other)
  Sender: FDA-Public Use
  Company Number: KR-ROCHE-774616

PATIENT
  Sex: Male
  Weight: 57 kg

DRUGS (3)
  1. RIBAVIRIN [Suspect]
     Route: 065
  2. ACETAMINOPHEN [Concomitant]
     Route: 048
     Dates: start: 20110314, end: 20110502
  3. PEGINTERFERON ALFA-2A [Suspect]
     Route: 065

REACTIONS (1)
  - BENIGN PROSTATIC HYPERPLASIA [None]
